FAERS Safety Report 22630006 (Version 2)
Quarter: 2023Q2

REPORT INFORMATION
  Report Type: Spontaneous
  Country: FR (occurrence: FR)
  Receive Date: 20230622
  Receipt Date: 20230628
  Transmission Date: 20230721
  Serious: Yes (Hospitalization, Other)
  Sender: FDA-Public Use
  Company Number: FR-CHEPLA-2023006806

PATIENT
  Age: 78 Year
  Sex: Female

DRUGS (2)
  1. EFFEXOR [Suspect]
     Active Substance: VENLAFAXINE HYDROCHLORIDE
     Indication: Depression
     Dosage: UNK
     Route: 065
  2. BROMAZEPAM [Suspect]
     Active Substance: BROMAZEPAM
     Indication: Depression
     Dosage: UNK
     Route: 065

REACTIONS (5)
  - Cerebrovascular accident [Unknown]
  - Drug dependence [Unknown]
  - Product use in unapproved indication [Unknown]
  - Incorrect product administration duration [Unknown]
  - Off label use [Unknown]
